FAERS Safety Report 16566296 (Version 2)
Quarter: 2019Q3

REPORT INFORMATION
  Report Type: Report from Study
  Country: None (occurrence: US)
  Receive Date: 20190712
  Receipt Date: 20190724
  Transmission Date: 20191004
  Serious: Yes (Hospitalization, Other)
  Sender: FDA-Public Use
  Company Number: US-ABBVIE-19K-163-2710336-00

PATIENT
  Age: 16 Year
  Sex: Male
  Weight: 54.03 kg

DRUGS (4)
  1. HUMIRA [Suspect]
     Active Substance: ADALIMUMAB
     Route: 058
     Dates: start: 201907
  2. HUMIRA [Suspect]
     Active Substance: ADALIMUMAB
     Indication: CROHN^S DISEASE
     Route: 058
     Dates: start: 20190530, end: 201906
  3. HUMIRA [Suspect]
     Active Substance: ADALIMUMAB
     Indication: CROHN^S DISEASE
     Dosage: DAY 1
     Route: 058
     Dates: start: 20190225, end: 20190225
  4. HUMIRA [Suspect]
     Active Substance: ADALIMUMAB
     Route: 058
     Dates: start: 20190311, end: 201907

REACTIONS (13)
  - Decreased appetite [Unknown]
  - Abdominal pain upper [Recovering/Resolving]
  - Abdominal pain [Unknown]
  - Fatigue [Unknown]
  - Depressed mood [Unknown]
  - Insomnia [Recovering/Resolving]
  - Gastrointestinal inflammation [Unknown]
  - Weight increased [Unknown]
  - Diarrhoea [Recovered/Resolved]
  - Abscess intestinal [Recovering/Resolving]
  - Gastrointestinal bacterial infection [Recovered/Resolved]
  - Diarrhoea [Not Recovered/Not Resolved]
  - Intestinal fistula [Recovering/Resolving]

NARRATIVE: CASE EVENT DATE: 2019
